FAERS Safety Report 6294778-2 (Version None)
Quarter: 2009Q3

REPORT INFORMATION
  Report Type: 
  Country: None (occurrence: None)
  Receive Date: 20090730
  Receipt Date: 20081014
  Transmission Date: 20100115
  Serious: No
  Sender: FDA-Public Use
  Company Number: 2008-1506

PATIENT
  Age: 59 Year
  Sex: Male
  Weight: 102 kg

DRUGS (6)
  1. LANREOTIDE AUTOGEL (LANREOTIDE) (LANREOTIDE ACETATE) [Suspect]
     Dosage: 60 MG, EVERY 28-30 DAYS, SUBCUTANEOUS
     Route: 058
     Dates: start: 20080806
  2. AMLODIPINE [Concomitant]
  3. CORTEF [Concomitant]
  4. RANITIDINE [Concomitant]
  5. MULTI-VITAMIN [Concomitant]
  6. DIAZEPAM [Concomitant]

REACTIONS (7)
  - ANXIETY [None]
  - BLOOD PRESSURE INCREASED [None]
  - DIARRHOEA [None]
  - DYSPEPSIA [None]
  - HEADACHE [None]
  - HEART RATE INCREASED [None]
  - NAUSEA [None]
